FAERS Safety Report 11363178 (Version 1)
Quarter: 2015Q3

REPORT INFORMATION
  Report Type: Spontaneous
  Country: DE (occurrence: None)
  Receive Date: 20150807
  Receipt Date: 20150807
  Transmission Date: 20151125
  Serious: Yes (Life-Threatening, Hospitalization)
  Sender: FDA-Public Use
  Company Number: DE-AGG-07-2015-0598

PATIENT
  Age: 75 Year
  Sex: Male
  Weight: 111 kg

DRUGS (18)
  1. DIURETIC [Concomitant]
     Active Substance: UNSPECIFIED INGREDIENT
  2. NITRO SOLOWAY [Concomitant]
  3. ENAHEXAL [Concomitant]
     Active Substance: ENALAPRIL MALEATE
  4. MOVICOL [Concomitant]
     Active Substance: POLYETHYLENE GLYCOL 3350\POTASSIUM CHLORIDE\SODIUM BICARBONATE\SODIUM CHLORIDE
  5. TAVANIC [Concomitant]
     Active Substance: LEVOFLOXACIN
  6. LIQUEMIN [Concomitant]
     Active Substance: HEPARIN SODIUM
  7. DELTAJONIN [Concomitant]
  8. CLOPIDOGREL [Concomitant]
     Active Substance: CLOPIDOGREL BISULFATE
  9. EUREPAM [Concomitant]
  10. PERLINGAINT [Concomitant]
  11. TIROFIBAN HYDROCHLORIDE. [Suspect]
     Active Substance: TIROFIBAN HYDROCHLORIDE
     Indication: ANTIPLATELET THERAPY
     Dosage: 1 X 10.5 ML EVERY 1 DAY INTRAVENOUS
     Route: 042
     Dates: start: 20070226, end: 20070226
  12. TIROFIBAN HCL [Suspect]
     Active Substance: TIROFIBAN HYDROCHLORIDE
     Indication: ANTIPLATELET THERAPY
     Dosage: 1 X 13 ML EVERY 1 HOUR INTRAVENOUS
     Route: 042
     Dates: start: 20070226, end: 20070227
  13. BELOC ZOK [Concomitant]
     Active Substance: METOPROLOL SUCCINATE
  14. ACETYLSALICYLIC ACID [Concomitant]
     Active Substance: ASPIRIN
  15. ACE-INHIBITOR [Concomitant]
     Active Substance: UNSPECIFIED INGREDIENT
  16. BITIFERAL [Concomitant]
  17. TIROFIBAN HCL [Suspect]
     Active Substance: TIROFIBAN HYDROCHLORIDE
     Indication: ANTIPLATELET THERAPY
     Dosage: 1 X 10.5 ML EVERY 1 DAY INTRAVENOUS
     Route: 042
     Dates: start: 20070226, end: 20070226
  18. ORAL ANTI-DIABETIC [Concomitant]

REACTIONS (1)
  - Coronary artery thrombosis [None]

NARRATIVE: CASE EVENT DATE: 20070226
